FAERS Safety Report 4267000-6 (Version None)
Quarter: 2004Q1

REPORT INFORMATION
  Report Type: 
  Country: None (occurrence: None)
  Receive Date: 20040107
  Receipt Date: 20031230
  Transmission Date: 20041129
  Serious: Yes (Hospitalization, Other)
  Sender: FDA-Public Use
  Company Number: US-JNJFOC-20031202352

PATIENT
  Sex: Female

DRUGS (4)
  1. PROPULSID [Suspect]
     Indication: DRUG USE FOR UNKNOWN INDICATION
     Dosage: 20 MG
  2. PRILOSEC [Concomitant]
  3. THYROID MED (THYROID HORMONES) [Concomitant]
  4. DARVOCET (PROPACET) [Concomitant]

REACTIONS (8)
  - ARRHYTHMIA [None]
  - CEREBROVASCULAR ACCIDENT [None]
  - DEPRESSION [None]
  - DYSPNOEA [None]
  - LOSS OF CONSCIOUSNESS [None]
  - MYOCARDIAL INFARCTION [None]
  - SOMNOLENCE [None]
  - THROMBOSIS [None]
